FAERS Safety Report 4967090-9 (Version None)
Quarter: 2006Q2

REPORT INFORMATION
  Report Type: 
  Country: None (occurrence: None)
  Receive Date: 20060403
  Receipt Date: 20060327
  Transmission Date: 20061013
  Serious: Yes (Other)
  Sender: FDA-Public Use
  Company Number: 2006039314

PATIENT
  Age: 45 Year
  Sex: Female

DRUGS (4)
  1. LIPITOR (ATORVASTATIN) [Suspect]
     Indication: BLOOD CHOLESTEROL INCREASED
     Dosage: 10 MG (10 MG, 1 IN 1 D), UNKNOWN
     Route: 065
     Dates: start: 20060301, end: 20060301
  2. ETODOLAC [Concomitant]
  3. RANITIDINE [Concomitant]
  4. DRUG, UNSPECIFIED (DRUG, UNSPECIFIED) [Concomitant]

REACTIONS (5)
  - ABDOMINAL DISCOMFORT [None]
  - FEELING ABNORMAL [None]
  - GASTRIC DISORDER [None]
  - INTENTIONAL SELF-INJURY [None]
  - MOOD SWINGS [None]
